FAERS Safety Report 5478316-X (Version None)
Quarter: 2007Q4

REPORT INFORMATION
  Report Type: 
  Country: None (occurrence: None)
  Receive Date: 20071005
  Receipt Date: 20071004
  Transmission Date: 20080405
  Serious: Yes (Other)
  Sender: FDA-Public Use
  Company Number: A0685596A

PATIENT
  Age: 45 Year
  Sex: Female

DRUGS (2)
  1. ALLI [Suspect]
     Route: 048
     Dates: start: 20070928, end: 20070929
  2. NO CONCURRENT MEDICATIONS [Concomitant]

REACTIONS (4)
  - ARTHRALGIA [None]
  - METRORRHAGIA [None]
  - PYREXIA [None]
  - VAGINAL HAEMORRHAGE [None]
